FAERS Safety Report 17140817 (Version 1)
Quarter: 2019Q4

REPORT INFORMATION
  Report Type: Report from Study
  Country: US (occurrence: US)
  Receive Date: 20191211
  Receipt Date: 20191211
  Transmission Date: 20200122
  Serious: Yes (Death, Hospitalization)
  Sender: FDA-Public Use
  Company Number: US-MYLANLABS-2019M1122490

PATIENT
  Age: 13 Year
  Sex: Female

DRUGS (1)
  1. DIPHENHYDRAMINE. [Suspect]
     Active Substance: DIPHENHYDRAMINE
     Indication: PRODUCT USED FOR UNKNOWN INDICATION
     Route: 065

REACTIONS (8)
  - Coma [Fatal]
  - Depressed level of consciousness [Fatal]
  - Seizure [Fatal]
  - Tachycardia [Fatal]
  - Toxicity to various agents [Fatal]
  - Hypotension [Fatal]
  - Respiratory depression [Fatal]
  - Electrocardiogram QRS complex prolonged [Fatal]
